FAERS Safety Report 5664630-1 (Version None)
Quarter: 2008Q1

REPORT INFORMATION
  Report Type: 
  Country: None (occurrence: None)
  Receive Date: 20080314
  Receipt Date: 20080305
  Transmission Date: 20080703
  Serious: Yes (Hospitalization)
  Sender: FDA-Public Use
  Company Number: US-MERCK-0705USA03634

PATIENT
  Age: 76 Year
  Sex: Female
  Weight: 70 kg

DRUGS (13)
  1. FOSAMAX [Suspect]
     Indication: OSTEOPENIA
     Route: 048
     Dates: start: 19980101, end: 20060601
  2. FOSAMAX [Suspect]
     Route: 048
     Dates: start: 19990701, end: 20000201
  3. FOSAMAX [Suspect]
     Route: 048
  4. LISINOPRIL [Concomitant]
     Route: 065
  5. NORVASC [Concomitant]
     Route: 065
  6. VITAMINS (UNSPECIFIED) [Concomitant]
     Route: 065
  7. SYNTHROID [Concomitant]
     Route: 065
  8. EVISTA [Concomitant]
     Route: 065
  9. ZOCOR [Concomitant]
     Route: 065
  10. PREMPRO [Concomitant]
     Indication: HORMONE REPLACEMENT THERAPY
     Route: 065
  11. ZESTRIL [Concomitant]
     Route: 065
  12. KLOR-CON [Concomitant]
     Route: 065
  13. AMITRIPTYLINE HYDROCHLORIDE [Concomitant]
     Route: 065

REACTIONS (27)
  - ANXIETY [None]
  - ARTHRALGIA [None]
  - ASTHMA [None]
  - CAROTID ARTERIOSCLEROSIS [None]
  - CARPAL TUNNEL SYNDROME [None]
  - COLITIS ISCHAEMIC [None]
  - DEPRESSION [None]
  - DERMAL CYST [None]
  - FIBROMA [None]
  - GINGIVAL DISORDER [None]
  - INFECTION [None]
  - INJURY [None]
  - INTERVERTEBRAL DISC PROTRUSION [None]
  - JAW FRACTURE [None]
  - OSTEOMYELITIS [None]
  - OSTEONECROSIS [None]
  - PANCREATIC CYST [None]
  - PATHOGEN RESISTANCE [None]
  - PATHOLOGICAL FRACTURE [None]
  - PNEUMONIA [None]
  - SOFT TISSUE DISORDER [None]
  - STAPHYLOCOCCAL INFECTION [None]
  - STREPTOCOCCAL INFECTION [None]
  - SUBMANDIBULAR MASS [None]
  - SWELLING [None]
  - UTERINE POLYP [None]
  - WRONG TECHNIQUE IN DRUG USAGE PROCESS [None]
